FAERS Safety Report 9772068 (Version 1)
Quarter: 2013Q4

REPORT INFORMATION
  Report Type: Report from Study
  Country: US (occurrence: US)
  Receive Date: 20131219
  Receipt Date: 20131219
  Transmission Date: 20140711
  Serious: Yes (Hospitalization)
  Sender: FDA-Public Use
  Company Number: US-JNJFOC-20131209143

PATIENT
  Age: 12 Year
  Sex: Female
  Weight: 33.7 kg

DRUGS (3)
  1. REMICADE [Suspect]
     Indication: CROHN^S DISEASE
     Route: 042
     Dates: start: 20121219
  2. PEPTAMEN [Concomitant]
     Route: 065
  3. 5-ASA [Concomitant]
     Route: 048

REACTIONS (1)
  - Crohn^s disease [Recovered/Resolved]
